FAERS Safety Report 13119840 (Version 1)
Quarter: 2017Q1

REPORT INFORMATION
  Report Type: Spontaneous
  Country: CA (occurrence: CA)
  Receive Date: 20170117
  Receipt Date: 20170117
  Transmission Date: 20170428
  Serious: Yes (Other)
  Sender: FDA-Public Use
  Company Number: CA-STRIDES ARCOLAB LIMITED-2017SP000355

PATIENT

DRUGS (3)
  1. CALCITRIOL. [Suspect]
     Active Substance: CALCITRIOL
     Dosage: UNK
  2. CALCITRIOL. [Suspect]
     Active Substance: CALCITRIOL
     Indication: HYPERPARATHYROIDISM
     Dosage: 1 ?G, 2 TIMES A WEEK
     Route: 033
  3. CALCITRIOL. [Suspect]
     Active Substance: CALCITRIOL
     Dosage: 0.75 ?G PER WEEK
     Route: 033

REACTIONS (2)
  - Peritonitis [Unknown]
  - Escherichia infection [Unknown]
